FAERS Safety Report 7353404-1 (Version None)
Quarter: 2011Q1

REPORT INFORMATION
  Report Type: 
  Country: None (occurrence: None)
  Receive Date: 20110310
  Receipt Date: 20110310
  Transmission Date: 20110831
  Serious: Yes (Life-Threatening, Hospitalization)
  Sender: FDA-Public Use
  Company Number: None

PATIENT
  Age: 59 Year
  Sex: Male

DRUGS (1)
  1. CIPRO IN DEXTROSE 5% [Suspect]
     Dosage: 400 MG BID IV
     Route: 042
     Dates: start: 20100522, end: 20100523

REACTIONS (2)
  - TACHYCARDIA [None]
  - TORSADE DE POINTES [None]
